FAERS Safety Report 8589979-4 (Version None)
Quarter: 2012Q3

REPORT INFORMATION
  Report Type: 
  Country: None (occurrence: None)
  Receive Date: 20120813
  Receipt Date: 19940224
  Transmission Date: 20120928
  Serious: Yes (Death)
  Sender: FDA-Public Use
  Company Number: US-ROCHE-1099257

PATIENT
  Sex: Male

DRUGS (2)
  1. ACTIVASE [Suspect]
     Route: 042
  2. ACTIVASE [Suspect]
     Indication: ACUTE MYOCARDIAL INFARCTION
     Route: 040
     Dates: start: 19931204

REACTIONS (1)
  - HYPOTENSION [None]
